FAERS Safety Report 14064001 (Version 1)
Quarter: 2017Q4

REPORT INFORMATION
  Report Type: Spontaneous
  Country: HR (occurrence: HR)
  Receive Date: 20171009
  Receipt Date: 20171009
  Transmission Date: 20180321
  Serious: Yes (Death)
  Sender: FDA-Public Use
  Company Number: HR-UNITED THERAPEUTICS-UNT-2017-014318

PATIENT
  Age: 69 Year
  Sex: Female

DRUGS (1)
  1. REMODULIN [Suspect]
     Active Substance: TREPROSTINIL
     Indication: PULMONARY HYPERTENSION
     Dosage: 0.02125 ?G/KG, CONTINUING
     Route: 058
     Dates: start: 201405

REACTIONS (1)
  - Pulmonary hypertension [Fatal]
